FAERS Safety Report 4455778-8 (Version None)
Quarter: 2004Q3

REPORT INFORMATION
  Report Type: 
  Country: None (occurrence: None)
  Receive Date: 20040920
  Receipt Date: 20040909
  Transmission Date: 20050211
  Serious: No
  Sender: FDA-Public Use
  Company Number: 2004UW19051

PATIENT
  Age: 24 Month
  Sex: Male
  Weight: 13.6079 kg

DRUGS (1)
  1. PRILOSEC [Suspect]
     Indication: GASTROOESOPHAGEAL REFLUX DISEASE
     Dates: start: 20031201

REACTIONS (6)
  - DIARRHOEA [None]
  - EOSINOPHILIA [None]
  - HAEMATOCHEZIA [None]
  - MEDICATION ERROR [None]
  - OESOPHAGITIS [None]
  - ULCER HAEMORRHAGE [None]
